FAERS Safety Report 8579587-3 (Version None)
Quarter: 2012Q3

REPORT INFORMATION
  Report Type: 
  Country: None (occurrence: None)
  Receive Date: 20120808
  Receipt Date: 20120802
  Transmission Date: 20120928
  Serious: Yes (Hospitalization)
  Sender: FDA-Public Use
  Company Number: US-JNJFOC-20120711715

PATIENT
  Sex: Male
  Weight: 63.1 kg

DRUGS (2)
  1. REMICADE [Suspect]
     Indication: INFLAMMATORY BOWEL DISEASE
     Route: 042
     Dates: start: 20100601
  2. MESALAMINE [Concomitant]
     Route: 048

REACTIONS (1)
  - ILEAL STENOSIS [None]
